FAERS Safety Report 10879201 (Version 1)
Quarter: 2015Q1

REPORT INFORMATION
  Report Type: Spontaneous
  Country: US (occurrence: None)
  Receive Date: 20150224
  Receipt Date: 20150224
  Transmission Date: 20150721
  Serious: Yes (Hospitalization)
  Sender: FDA-Public Use
  Company Number: None

PATIENT
  Age: 47 Year
  Sex: Female
  Weight: 71.67 kg

DRUGS (8)
  1. PROBIOSLIM [Suspect]
     Active Substance: DIETARY SUPPLEMENT
     Dates: start: 20150221, end: 20150221
  2. ASPIRIN. [Concomitant]
     Active Substance: ASPIRIN
  3. GARLIC SUPPLEMENT [Concomitant]
  4. VITAMIN C [Concomitant]
     Active Substance: ASCORBIC ACID
  5. PROBIOSLIM [Suspect]
     Active Substance: DIETARY SUPPLEMENT
     Indication: METABOLIC DISORDER
     Dates: start: 20150221, end: 20150221
  6. MULTI-VITAMIN [Concomitant]
     Active Substance: .ALPHA.-TOCOPHEROL ACETATE, DL-\ASCORBIC ACID\CYANOCOBALAMIN\FLUORIDE ION\FOLIC ACID\NIACIN\PYRIDOXINE\RIBOFLAVIN\THIAMINE\VITAMIN A\VITAMIN D
  7. FISH OIL [Concomitant]
     Active Substance: FISH OIL
  8. JOINT 500+MG PEAK LIFE [Suspect]
     Active Substance: DIETARY SUPPLEMENT
     Indication: ARTHROPATHY

REACTIONS (8)
  - Abdominal pain upper [None]
  - Retching [None]
  - Diarrhoea [None]
  - Tremor [None]
  - Eructation [None]
  - Headache [None]
  - Dizziness [None]
  - Nausea [None]

NARRATIVE: CASE EVENT DATE: 20150221
